FAERS Safety Report 15976419 (Version 1)
Quarter: 2019Q1

REPORT INFORMATION
  Report Type: Spontaneous
  Country: AU (occurrence: AU)
  Receive Date: 20190218
  Receipt Date: 20190218
  Transmission Date: 20190418
  Serious: Yes (Hospitalization, Other)
  Sender: FDA-Public Use
  Company Number: AU-TEVA-2019-AU-1014628

PATIENT
  Age: 68 Year
  Sex: Female

DRUGS (3)
  1. CLOZARIL [Suspect]
     Active Substance: CLOZAPINE
     Indication: SCHIZOPHRENIA
     Dosage: DOSAGE UNKNOWN
     Route: 048
     Dates: start: 20181210, end: 20190109
  2. CLOZARIL [Suspect]
     Active Substance: CLOZAPINE
     Route: 048
     Dates: start: 201901, end: 20190112
  3. QUETIAPINE. [Suspect]
     Active Substance: QUETIAPINE
     Indication: PRODUCT USED FOR UNKNOWN INDICATION
     Dosage: DOSAGE UNKNOWN
     Route: 065

REACTIONS (4)
  - Pneumonia [Unknown]
  - Troponin increased [Recovering/Resolving]
  - Body temperature increased [Unknown]
  - Parkinsonism [Unknown]

NARRATIVE: CASE EVENT DATE: 2019
